FAERS Safety Report 4537421-2 (Version None)
Quarter: 2004Q4

REPORT INFORMATION
  Report Type: 
  Country: None (occurrence: None)
  Receive Date: 20041216
  Receipt Date: 20040429
  Transmission Date: 20050328
  Serious: Yes (Hospitalization)
  Sender: FDA-Public Use
  Company Number: HQWYE69540MAY04

PATIENT
  Age: 60 Year
  Sex: Female

DRUGS (2)
  1. EFFEXOR XR [Suspect]
     Indication: DEPRESSION
     Dosage: 150 MG 1X PER 1 DAY, ORAL
     Route: 048
  2. UNSPECIFIED BENZODIAZEPINE (UNSPECIFIED BENZODIAZEPINE) [Concomitant]

REACTIONS (4)
  - ARTHRALGIA [None]
  - EYELID OEDEMA [None]
  - PAIN [None]
  - SWELLING FACE [None]
